FAERS Safety Report 5504312-X (Version None)
Quarter: 2007Q4

REPORT INFORMATION
  Report Type: 
  Country: None (occurrence: None)
  Receive Date: 20071101
  Receipt Date: 20071022
  Transmission Date: 20080405
  Serious: Yes (Other)
  Sender: FDA-Public Use
  Company Number: CHWYE390928SEP07

PATIENT
  Age: 71 Year
  Sex: Male
  Weight: 70 kg

DRUGS (1)
  1. EFFEXOR [Suspect]
     Indication: MAJOR DEPRESSION
     Route: 048
     Dates: start: 20061101, end: 20070831

REACTIONS (4)
  - AMAUROSIS FUGAX [None]
  - CONDITION AGGRAVATED [None]
  - HEMIPLEGIA [None]
  - HYPERTENSIVE CRISIS [None]
